FAERS Safety Report 8574603-7 (Version None)
Quarter: 2012Q3

REPORT INFORMATION
  Report Type: 
  Country: None (occurrence: None)
  Receive Date: 20120807
  Receipt Date: 20120727
  Transmission Date: 20120928
  Serious: Yes (Hospitalization)
  Sender: FDA-Public Use
  Company Number: GB-009507513-1208GBR000407

PATIENT

DRUGS (3)
  1. DEXAMETHASONE TABLETS BP  2.0MG [Suspect]
     Dosage: 4 MG, Q6H
     Route: 048
  2. DEXAMETHASONE TABLETS BP  2.0MG [Suspect]
     Indication: MENINGITIS PNEUMOCOCCAL
     Dosage: 10 MG, Q6H
     Route: 048
  3. DEXAMETHASONE TABLETS BP  2.0MG [Suspect]
     Dosage: 40 MG, QD
     Route: 048

REACTIONS (1)
  - CEREBRAL ISCHAEMIA [None]
